FAERS Safety Report 8974709 (Version 1)
Quarter: 2012Q4

REPORT INFORMATION
  Report Type: Spontaneous
  Country: US (occurrence: None)
  Receive Date: 20121217
  Receipt Date: 20121217
  Transmission Date: 20130627
  Serious: Yes (Other)
  Sender: FDA-Public Use
  Company Number: None

PATIENT
  Age: 85 Year
  Sex: Male
  Weight: 85.28 kg

DRUGS (1)
  1. PROLIA [Suspect]
     Indication: OSTEOPOROSIS
     Dosage: One shot injection  1 shot/ 6 month

REACTIONS (6)
  - Rash [None]
  - Insomnia [None]
  - Fall [None]
  - Balance disorder [None]
  - Haemorrhage [None]
  - Haemorrhagic disorder [None]
